FAERS Safety Report 18006837 (Version 1)
Quarter: 2020Q3

REPORT INFORMATION
  Report Type: Spontaneous
  Country: US (occurrence: US)
  Receive Date: 20200709
  Receipt Date: 20200709
  Transmission Date: 20201103
  Serious: No
  Sender: FDA-Public Use
  Company Number: None

PATIENT

DRUGS (2)
  1. LABETALOL [Suspect]
     Active Substance: LABETALOL\LABETALOL HYDROCHLORIDE
     Dosage: ?          OTHER DOSE:100MG/4ML;?
  2. LIDOCAINE 2% LIDOCAINE [Suspect]
     Active Substance: LIDOCAINE HYDROCHLORIDE
     Dosage: ?          OTHER DOSE:100MG/5ML;?

REACTIONS (3)
  - Product packaging confusion [None]
  - Wrong product administered [None]
  - Product storage error [None]
